FAERS Safety Report 13494016 (Version 1)
Quarter: 2017Q2

REPORT INFORMATION
  Report Type: Spontaneous
  Country: US (occurrence: US)
  Receive Date: 20170427
  Receipt Date: 20170427
  Transmission Date: 20170830
  Serious: Yes (Life-Threatening, Hospitalization, Other)
  Sender: FDA-Public Use
  Company Number: US-JNJFOC-HOAFF43977

PATIENT
  Age: 35 Year
  Sex: Male

DRUGS (2)
  1. LOPERAMIDE [Suspect]
     Active Substance: LOPERAMIDE
     Route: 048
  2. LOPERAMIDE [Suspect]
     Active Substance: LOPERAMIDE
     Indication: PRODUCT USED FOR UNKNOWN INDICATION
     Route: 048

REACTIONS (6)
  - Seizure [Recovered/Resolved]
  - Suicide attempt [Unknown]
  - Mydriasis [Recovered/Resolved]
  - Coma [Recovered/Resolved]
  - Hyponatraemia [Recovered/Resolved]
  - Overdose [Recovered/Resolved]
